FAERS Safety Report 4299505-6 (Version None)
Quarter: 2004Q1

REPORT INFORMATION
  Report Type: 
  Country: None (occurrence: None)
  Receive Date: 20040217
  Receipt Date: 20040217
  Transmission Date: 20041129
  Serious: Yes (Hospitalization)
  Sender: FDA-Public Use
  Company Number: None

PATIENT
  Age: 52 Year
  Sex: Male
  Weight: 202.8 kg

DRUGS (2)
  1. CARBOPLATIN [Suspect]
     Indication: TONSIL CANCER
     Dosage: 822 MG EVERY 4 IV DRIP
     Route: 041
     Dates: start: 20020530, end: 20020627
  2. TAXOL [Suspect]
     Indication: TONSIL CANCER
     Dosage: 216 MG EVERY WEEK IV DRIP
     Route: 041
     Dates: start: 20020530, end: 20020703

REACTIONS (4)
  - CHEST PAIN [None]
  - PETECHIAE [None]
  - PYREXIA [None]
  - RASH [None]
